FAERS Safety Report 13781618 (Version 1)
Quarter: 2017Q3

REPORT INFORMATION
  Report Type: Report from Study
  Country: DK (occurrence: DK)
  Receive Date: 20170724
  Receipt Date: 20170724
  Transmission Date: 20171127
  Serious: Yes (Other)
  Sender: FDA-Public Use
  Company Number: DK-ROCHE-1967931

PATIENT
  Age: 19 Year
  Sex: Female

DRUGS (2)
  1. CLONAZEPAM. [Suspect]
     Active Substance: CLONAZEPAM
     Route: 048
  2. CLONAZEPAM. [Suspect]
     Active Substance: CLONAZEPAM
     Indication: EPILEPSY
     Dosage: INCREASED DURING THE FIRST TWO WEEKS IN HOSPITAL, FROM 0.5 MG TO A MAXIMUM OF 6.0 MG PER DAY
     Route: 048

REACTIONS (1)
  - Dysphoria [Unknown]
